FAERS Safety Report 9154319 (Version 1)
Quarter: 2013Q1

REPORT INFORMATION
  Report Type: Spontaneous
  Country: US (occurrence: US)
  Receive Date: 20130311
  Receipt Date: 20130311
  Transmission Date: 20140127
  Serious: No
  Sender: FDA-Public Use
  Company Number: US-BAYER-2013-026991

PATIENT
  Age: 51 Year
  Sex: Female
  Weight: 129 kg

DRUGS (4)
  1. ALEVE CAPLET/TABLET,MIDOL EXTENDED RELIEF CAPLET [Suspect]
     Indication: ANALGESIC THERAPY
     Dosage: 2 DF, UNK
     Route: 048
  2. ACETAMINOPHEN [Concomitant]
  3. SYNTHROID [Concomitant]
  4. TYLENOL [PARACETAMOL] [Concomitant]
     Dosage: 2 DF, UNK

REACTIONS (1)
  - Overdose [None]
